FAERS Safety Report 8166305-6 (Version None)
Quarter: 2012Q1

REPORT INFORMATION
  Report Type: 
  Country: None (occurrence: None)
  Receive Date: 20120227
  Receipt Date: 20110620
  Transmission Date: 20120608
  Serious: No
  Sender: FDA-Public Use
  Company Number: US-MYLANLABS-2011S1011581

PATIENT
  Age: 19 Year
  Sex: Male
  Weight: 79.38 kg

DRUGS (1)
  1. AMNESTEEM [Suspect]
     Indication: ACNE
     Route: 048
     Dates: start: 20110414, end: 20110504

REACTIONS (5)
  - SOCIAL AVOIDANT BEHAVIOUR [None]
  - FATIGUE [None]
  - ADVERSE EVENT [None]
  - DIZZINESS [None]
  - INSOMNIA [None]
